FAERS Safety Report 24698144 (Version 1)
Quarter: 2024Q4

REPORT INFORMATION
  Report Type: Spontaneous
  Country: IN (occurrence: IN)
  Receive Date: 20241204
  Receipt Date: 20241204
  Transmission Date: 20250114
  Serious: Yes (Hospitalization)
  Sender: PRECISION DOSE, INC.
  Company Number: IN-PRECISION DOSE, INC.-2024PRD00007

PATIENT
  Age: 31 Year
  Sex: Male
  Weight: 70 kg

DRUGS (1)
  1. DEXMEDETOMIDINE [Suspect]
     Active Substance: DEXMEDETOMIDINE
     Indication: Sedation
     Dosage: 0.8 ?G/KG
     Route: 042

REACTIONS (1)
  - Stress cardiomyopathy [Recovered/Resolved]
